FAERS Safety Report 13344836 (Version 3)
Quarter: 2017Q2

REPORT INFORMATION
  Report Type: Spontaneous
  Country: TR (occurrence: TR)
  Receive Date: 20170317
  Receipt Date: 20170425
  Transmission Date: 20170830
  Serious: Yes (Other)
  Sender: FDA-Public Use
  Company Number: PHHY2017TR040707

PATIENT
  Age: 75 Year
  Sex: Male

DRUGS (2)
  1. REVOLADE [Suspect]
     Active Substance: ELTROMBOPAG
     Indication: THROMBOCYTOPENIA
  2. REVOLADE [Suspect]
     Active Substance: ELTROMBOPAG
     Indication: MYELODYSPLASTIC SYNDROME
     Dosage: 50 TO 100 MG, QD
     Route: 048
     Dates: start: 20160610, end: 20170210

REACTIONS (18)
  - Lymphadenopathy [Unknown]
  - Red blood cell elliptocytes present [Unknown]
  - Red blood cell acanthocytes present [Unknown]
  - Eosinophil count decreased [Unknown]
  - Red blood cell abnormality [Unknown]
  - Myelofibrosis [Unknown]
  - Leukopenia [Unknown]
  - Megakaryocytes increased [Unknown]
  - Product use in unapproved indication [Unknown]
  - Platelet count decreased [Not Recovered/Not Resolved]
  - Haemoglobin decreased [Unknown]
  - Red cell distribution width increased [Unknown]
  - Red blood cell count decreased [Unknown]
  - Fibrosis [Not Recovered/Not Resolved]
  - Haematocrit decreased [Unknown]
  - Monocyte count increased [Unknown]
  - Anaemia [Unknown]
  - Therapy partial responder [Unknown]

NARRATIVE: CASE EVENT DATE: 20160610
